FAERS Safety Report 15786867 (Version 1)
Quarter: 2019Q1

REPORT INFORMATION
  Report Type: Spontaneous
  Country: US (occurrence: US)
  Receive Date: 20190103
  Receipt Date: 20190103
  Transmission Date: 20190417
  Serious: Yes (Other)
  Sender: FDA-Public Use
  Company Number: US-CELGENEUS-USA-20181208943

PATIENT
  Age: 70 Year
  Sex: Male

DRUGS (3)
  1. ENASIDENIB [Concomitant]
     Active Substance: ENASIDENIB
     Dosage: 400 MILLIGRAM
     Route: 048
  2. AZACITIDINE. [Suspect]
     Active Substance: AZACITIDINE
     Indication: ACUTE MYELOID LEUKAEMIA
     Dosage: 4 CYCLES
     Route: 065
  3. ENASIDENIB [Concomitant]
     Active Substance: ENASIDENIB
     Indication: DIFFERENTIATION SYNDROME
     Dosage: 200 MILLIGRAM
     Route: 048

REACTIONS (1)
  - Pancytopenia [Not Recovered/Not Resolved]
